FAERS Safety Report 25198501 (Version 1)
Quarter: 2025Q2

REPORT INFORMATION
  Report Type: Spontaneous
  Country: US (occurrence: None)
  Receive Date: 20250414
  Receipt Date: 20250414
  Transmission Date: 20250717
  Serious: Yes (Hospitalization)
  Sender: FDA-CTU
  Company Number: None

PATIENT
  Age: 76 Year
  Sex: Female

DRUGS (1)
  1. GILOTRIF [Suspect]
     Active Substance: AFATINIB
     Dosage: 40MG QD

REACTIONS (10)
  - Diarrhoea [None]
  - Dehydration [None]
  - Vomiting [None]
  - Stomatitis [None]
  - Blister [None]
  - Rash [None]
  - Asthenia [None]
  - Abdominal pain [None]
  - Hernia pain [None]
  - Abdominal hernia [None]
